FAERS Safety Report 19966660 (Version 3)
Quarter: 2022Q2

REPORT INFORMATION
  Report Type: Spontaneous
  Country: US (occurrence: US)
  Receive Date: 20211018
  Receipt Date: 20220520
  Transmission Date: 20220721
  Serious: No
  Sender: FDA-Public Use
  Company Number: US-SA-SAC20211014000714

PATIENT
  Age: 88 Year
  Sex: Female

DRUGS (2)
  1. DUPIXENT [Suspect]
     Active Substance: DUPILUMAB
     Indication: Dermatitis atopic
     Dosage: 300 MG, QOW (300MG/2ML)
     Route: 058
     Dates: start: 202108
  2. MODERNA COVID-19 VACCINE [Suspect]
     Active Substance: ELASOMERAN
     Indication: Immunisation
     Dosage: UNK
     Route: 065

REACTIONS (5)
  - Joint swelling [Unknown]
  - Joint stiffness [Unknown]
  - Pruritus [Unknown]
  - Eczema [Unknown]
  - Dermatitis atopic [Unknown]

NARRATIVE: CASE EVENT DATE: 20210101
